FAERS Safety Report 8756856 (Version 1)
Quarter: 2012Q4

REPORT INFORMATION
  Report Type: 
  Country: US (occurrence: US)
  Receive Date: 20120828
  Receipt Date: 20120828
  Transmission Date: 20130627
  Serious: No
  Sender: FDA-Public Use
  Company Number: US-BAYER-2012-083787

PATIENT
  Sex: Female

DRUGS (4)
  1. BETASERON [Suspect]
     Dosage: 1 ml, QOD
     Route: 058
  2. PRISTIQ [Concomitant]
     Dosage: 50 mg, UNK
  3. BACLOFEN [Concomitant]
     Dosage: 10 mg, UNK
  4. TYLENOL [Concomitant]
     Dosage: 325 mg, UNK

REACTIONS (5)
  - Malaise [Unknown]
  - Influenza like illness [Unknown]
  - Abdominal discomfort [Unknown]
  - Menorrhagia [None]
  - No adverse event [None]
